FAERS Safety Report 15725408 (Version 4)
Quarter: 2020Q1

REPORT INFORMATION
  Report Type: Spontaneous
  Country: US (occurrence: US)
  Receive Date: 20181215
  Receipt Date: 20200121
  Transmission Date: 20200409
  Serious: Yes (Death)
  Sender: FDA-Public Use
  Company Number: US-AUROBINDO-AUR-APU-2018-058872

PATIENT
  Age: 72 Year
  Sex: Male
  Weight: 91 kg

DRUGS (10)
  1. PIPERACILLIN AND TAZOBACTAM [Suspect]
     Active Substance: PIPERACILLIN SODIUM\TAZOBACTAM SODIUM
     Indication: ARTHRITIS INFECTIVE
     Dosage: 8 ML INFUSED
     Route: 065
     Dates: start: 20181202, end: 20181202
  2. MORPHINE [Suspect]
     Active Substance: MORPHINE
     Indication: NAUSEA
  3. VANCOMYCIN [Suspect]
     Active Substance: VANCOMYCIN
     Indication: PRODUCT USED FOR UNKNOWN INDICATION
     Dosage: 1 MILLIGRAM, ONE DOSE
     Route: 065
     Dates: start: 20181202
  4. RESERPINE. [Concomitant]
     Active Substance: RESERPINE
     Indication: PRODUCT USED FOR UNKNOWN INDICATION
  5. MORPHINE [Suspect]
     Active Substance: MORPHINE
     Indication: PAIN
     Dosage: 4 MILLIGRAM
     Route: 042
  6. ZOFRAN [Concomitant]
     Active Substance: ONDANSETRON HYDROCHLORIDE
     Indication: PAIN
     Dosage: 4 MILLIGRAM
     Route: 042
  7. PLAVIX [Concomitant]
     Active Substance: CLOPIDOGREL BISULFATE
     Indication: ANTICOAGULANT THERAPY
     Dosage: UNK
     Route: 065
  8. AMOXICILLIN. [Concomitant]
     Active Substance: AMOXICILLIN
     Indication: PRODUCT USED FOR UNKNOWN INDICATION
     Route: 065
  9. LORAZEPAM. [Concomitant]
     Active Substance: LORAZEPAM
     Indication: PRODUCT USED FOR UNKNOWN INDICATION
     Route: 065
  10. ZOFRAN [Concomitant]
     Active Substance: ONDANSETRON HYDROCHLORIDE
     Indication: NAUSEA

REACTIONS (4)
  - Dyspnoea [Fatal]
  - Flushing [Fatal]
  - Cardiac arrest [Fatal]
  - Sinus tachycardia [Fatal]

NARRATIVE: CASE EVENT DATE: 20181202
